FAERS Safety Report 9409398 (Version 3)
Quarter: 2013Q3

REPORT INFORMATION
  Report Type: Spontaneous
  Country: US (occurrence: US)
  Receive Date: 20130719
  Receipt Date: 20130819
  Transmission Date: 20140515
  Serious: Yes (Hospitalization, Other)
  Sender: FDA-Public Use
  Company Number: US-JNJFOC-20130708930

PATIENT
  Age: 88 Year
  Sex: Female
  Weight: 88 kg

DRUGS (2)
  1. XARELTO [Suspect]
     Indication: CEREBROVASCULAR ACCIDENT PROPHYLAXIS
     Dosage: ESTIMATE TIME 5 PM
     Route: 048
     Dates: start: 20130426, end: 20130517
  2. XARELTO [Suspect]
     Indication: ATRIAL FIBRILLATION
     Dosage: ESTIMATE TIME 5 PM
     Route: 048
     Dates: start: 20130426, end: 20130517

REACTIONS (3)
  - Colon cancer [Unknown]
  - Haemorrhoids [Unknown]
  - Rectal haemorrhage [Unknown]
